FAERS Safety Report 13841519 (Version 2)
Quarter: 2017Q3

REPORT INFORMATION
  Report Type: Spontaneous
  Country: US (occurrence: US)
  Receive Date: 20170807
  Receipt Date: 20170905
  Transmission Date: 20171127
  Serious: Yes (Other)
  Sender: FDA-Public Use
  Company Number: US-PFIZER INC-2017338400

PATIENT
  Age: 58 Year
  Sex: Male
  Weight: 59 kg

DRUGS (1)
  1. MIDAZOLAM [Suspect]
     Active Substance: MIDAZOLAM HYDROCHLORIDE
     Indication: SEDATION
     Dosage: TWO SEPARATE DOSES OF 1MG

REACTIONS (1)
  - Sedation complication [Recovered/Resolved]

NARRATIVE: CASE EVENT DATE: 20170801
